FAERS Safety Report 22246520 (Version 2)
Quarter: 2023Q2

REPORT INFORMATION
  Report Type: Report from Study
  Country: US (occurrence: US)
  Receive Date: 20230424
  Receipt Date: 20230630
  Transmission Date: 20230721
  Serious: Yes (Hospitalization, Other)
  Sender: FDA-Public Use
  Company Number: US-JAZZ PHARMACEUTICALS-2023-US-008998

PATIENT
  Sex: Male

DRUGS (1)
  1. EPIDIOLEX [Suspect]
     Active Substance: CANNABIDIOL
     Indication: Product used for unknown indication
     Dosage: UNK
     Dates: start: 20190118

REACTIONS (6)
  - Hospitalisation [Unknown]
  - Seizure [Unknown]
  - Weight increased [Unknown]
  - Insomnia [Unknown]
  - Gait disturbance [Unknown]
  - Unevaluable event [Unknown]
